FAERS Safety Report 8074971-9 (Version None)
Quarter: 2012Q1

REPORT INFORMATION
  Report Type: 
  Country: None (occurrence: None)
  Receive Date: 20120127
  Receipt Date: 20120120
  Transmission Date: 20120608
  Serious: Yes (Hospitalization)
  Sender: FDA-Public Use
  Company Number: US-BIOGENIDEC-2011BI038348

PATIENT
  Sex: Female
  Weight: 84 kg

DRUGS (35)
  1. LOTRISONE [Concomitant]
  2. NEURONTIN [Concomitant]
     Indication: NEURALGIA
     Route: 048
  3. VITAMIN E [Concomitant]
     Route: 048
  4. BONIVA [Concomitant]
     Route: 048
  5. RECLAST [Concomitant]
     Dates: start: 20081201
  6. PREMARIN [Concomitant]
     Route: 067
     Dates: end: 20030101
  7. NITROFURANTOIN [Concomitant]
     Route: 048
  8. TIMOLOL MALEATE [Concomitant]
  9. FOSAMAX [Concomitant]
  10. BACTROBAN [Concomitant]
     Indication: DECUBITUS ULCER
  11. AVONEX [Suspect]
     Route: 030
     Dates: start: 20111001
  12. CALCIUM [Concomitant]
     Route: 048
  13. BACLOFEN [Concomitant]
  14. CELEBREX [Concomitant]
     Route: 048
  15. COMPAZINE [Concomitant]
     Route: 054
  16. KETOCONAZOLE [Concomitant]
     Indication: FUNGAL SKIN INFECTION
     Route: 061
  17. BACTROBAN [Concomitant]
     Route: 061
  18. AVONEX [Suspect]
     Indication: MULTIPLE SCLEROSIS
     Route: 030
     Dates: end: 20030101
  19. AVONEX [Suspect]
     Route: 030
     Dates: start: 20030101, end: 20110101
  20. VITAMIN D [Concomitant]
     Route: 048
  21. RHINOCORT [Concomitant]
     Route: 045
  22. NYSTATIN [Concomitant]
  23. ASPIRIN [Concomitant]
     Route: 048
  24. MULTI-VITAMIN [Concomitant]
     Route: 048
  25. FLEXERIL [Concomitant]
  26. ZYRTEC [Concomitant]
  27. ALLEGRA [Concomitant]
     Route: 048
  28. SINEMET [Concomitant]
     Route: 048
  29. MIRALAX [Concomitant]
  30. ALPHAGAN P [Concomitant]
  31. HYDROCODONE BITARTRATE AND ACETAMINOPHEN [Concomitant]
     Indication: PAIN
     Route: 048
  32. FISH OIL [Concomitant]
     Route: 048
  33. ASCORBIC ACID [Concomitant]
     Route: 048
  34. CYCLOBENZAPRINE [Concomitant]
     Indication: MUSCLE SPASMS
     Route: 048
  35. SYNALAR [Concomitant]
     Indication: RASH
     Route: 061

REACTIONS (10)
  - POSTOPERATIVE WOUND INFECTION [None]
  - SCOLIOSIS [None]
  - SPINAL FRACTURE [None]
  - SPONDYLOLISTHESIS [None]
  - PROCEDURAL COMPLICATION [None]
  - INCISION SITE HAEMORRHAGE [None]
  - SPINAL OSTEOARTHRITIS [None]
  - LUMBAR SPINAL STENOSIS [None]
  - SPINAL COMPRESSION FRACTURE [None]
  - WOUND DEHISCENCE [None]
